FAERS Safety Report 20992702 (Version 2)
Quarter: 2022Q2

REPORT INFORMATION
  Report Type: Spontaneous
  Country: JP (occurrence: JP)
  Receive Date: 20220622
  Receipt Date: 20220623
  Transmission Date: 20220721
  Serious: Yes (Other)
  Sender: FDA-Public Use
  Company Number: JP-ONO-2022JP017094

PATIENT
  Age: 47 Year
  Sex: Male
  Weight: 73 kg

DRUGS (16)
  1. BRAFTOVI [Suspect]
     Active Substance: ENCORAFENIB
     Indication: Colon cancer
     Dosage: 300 MG, EVERYDAY
     Route: 048
     Dates: start: 20211105
  2. BRAFTOVI [Suspect]
     Active Substance: ENCORAFENIB
     Dosage: UNK UNK, EVERYDAY
     Route: 048
     Dates: end: 20220206
  3. BRAFTOVI [Suspect]
     Active Substance: ENCORAFENIB
     Dosage: UNK UNK, EVERYDAY
     Route: 048
     Dates: start: 20220310, end: 20220316
  4. BRAFTOVI [Suspect]
     Active Substance: ENCORAFENIB
     Dosage: UNK UNK, EVERYDAY
     Route: 048
     Dates: start: 20220406
  5. MEKTOVI [Suspect]
     Active Substance: BINIMETINIB
     Indication: Colon cancer
     Dosage: 45 MG, Q12H
     Route: 048
     Dates: start: 20211105
  6. MEKTOVI [Suspect]
     Active Substance: BINIMETINIB
     Dosage: UNK UNK, Q12H
     Route: 048
     Dates: end: 20220206
  7. MEKTOVI [Suspect]
     Active Substance: BINIMETINIB
     Dosage: UNK UNK, Q12H
     Route: 048
     Dates: start: 20220310, end: 20220316
  8. MEKTOVI [Suspect]
     Active Substance: BINIMETINIB
     Dosage: UNK UNK, Q12H
     Route: 048
     Dates: start: 20220406
  9. ERBITUX [Concomitant]
     Active Substance: CETUXIMAB
     Indication: Colon cancer
     Dosage: UNK
     Route: 042
     Dates: start: 20211105
  10. MINOCYCLINE HYDROCHLORIDE [Concomitant]
     Active Substance: MINOCYCLINE HYDROCHLORIDE
     Dosage: UNK
     Route: 048
     Dates: start: 20211115
  11. VONOPRAZAN FUMARATE [Concomitant]
     Active Substance: VONOPRAZAN FUMARATE
     Dosage: UNK
     Route: 048
     Dates: start: 20211201
  12. CAMOSTAT MESYLATE [Concomitant]
     Active Substance: CAMOSTAT MESYLATE
     Dosage: UNK
     Route: 065
     Dates: start: 20220127
  13. DIPHENHYDRAMINE [Concomitant]
     Active Substance: DIPHENHYDRAMINE
     Dosage: UNK (USED ONLY ON ADMINISTRATION DAYS OF ERBITUX)
     Route: 048
     Dates: start: 20211124
  14. CLOBETASOL [Concomitant]
     Active Substance: CLOBETASOL
     Dosage: UNK
     Route: 061
     Dates: start: 20211124
  15. GLYCOSAMINOGLYCANS [Concomitant]
     Active Substance: GLYCOSAMINOGLYCANS
     Dosage: UNK
     Route: 061
     Dates: start: 20211124
  16. CLOBETASOL [Concomitant]
     Active Substance: CLOBETASOL
     Dosage: UNK
     Route: 061
     Dates: start: 20211124

REACTIONS (3)
  - Macular detachment [Recovered/Resolved]
  - Paronychia [Unknown]
  - Skin disorder [Unknown]

NARRATIVE: CASE EVENT DATE: 20220316
